FAERS Safety Report 17262818 (Version 5)
Quarter: 2020Q4

REPORT INFORMATION
  Report Type: Report from Study
  Country: US (occurrence: US)
  Receive Date: 20200113
  Receipt Date: 20201125
  Transmission Date: 20210113
  Serious: Yes (Death, Other)
  Sender: FDA-Public Use
  Company Number: US-PFIZER INC-2020009750

PATIENT
  Age: 20 Year
  Sex: Female

DRUGS (3)
  1. LEUCOVORIN [FOLINIC ACID] [Concomitant]
     Active Substance: LEUCOVORIN
     Dosage: UNK
  2. METHOTREXATE SODIUM. [Suspect]
     Active Substance: METHOTREXATE SODIUM
     Dosage: 5000 MG/M2,  CYCLIC (HIGH-DOSE IV MTX)
     Route: 042
  3. METHOTREXATE SODIUM. [Suspect]
     Active Substance: METHOTREXATE SODIUM
     Indication: B PRECURSOR TYPE ACUTE LEUKAEMIA
     Dosage: UNK, CYCLIC
     Route: 037

REACTIONS (8)
  - Neurotoxicity [Fatal]
  - Disinhibition [Unknown]
  - Paraesthesia [Unknown]
  - Leukoencephalopathy [Fatal]
  - Respiratory distress [Unknown]
  - Dysarthria [Unknown]
  - Ataxia [Unknown]
  - Confusional state [Unknown]
